FAERS Safety Report 6696197-3 (Version None)
Quarter: 2010Q2

REPORT INFORMATION
  Report Type: 
  Country: None (occurrence: None)
  Receive Date: 20100426
  Receipt Date: 20100422
  Transmission Date: 20101027
  Serious: Yes (Life-Threatening)
  Sender: FDA-Public Use
  Company Number: GB-ASTRAZENECA-2010SE17955

PATIENT
  Age: 8 Year
  Sex: Male
  Weight: 21 kg

DRUGS (9)
  1. BUPIVACAINE HCL [Suspect]
     Indication: INDUCTION OF ANAESTHESIA
     Dosage: 8 ML OF BUPIVACAINE 5MG/ML
  2. BUPIVACAINE HCL [Suspect]
     Indication: MAINTENANCE OF ANAESTHESIA
     Dosage: 8 ML OF BUPIVACAINE 5MG/ML
  3. PROPOFOL [Suspect]
     Route: 042
  4. PROPOFOL [Suspect]
     Route: 042
  5. REMIFENTANIL [Suspect]
     Indication: MAINTENANCE OF ANAESTHESIA
     Route: 042
  6. ADRENALINE [Suspect]
     Dosage: 1:200 000
  7. ATRACURIUM BESYLATE [Suspect]
     Indication: INDUCTION OF ANAESTHESIA
     Route: 042
  8. CODEINE SULFATE [Concomitant]
     Route: 054
  9. ACETAMINOPHEN [Concomitant]
     Route: 042

REACTIONS (7)
  - ASPIRATION [None]
  - BRAIN STEM HAEMORRHAGE [None]
  - DYSPHAGIA [None]
  - HYPERTENSION [None]
  - MUSCULAR WEAKNESS [None]
  - RESPIRATORY ACIDOSIS [None]
  - RESPIRATORY FAILURE [None]
